FAERS Safety Report 8958793 (Version 2)
Quarter: 2012Q4

REPORT INFORMATION
  Report Type: 
  Country: AT (occurrence: AT)
  Receive Date: 20121212
  Receipt Date: 20121213
  Transmission Date: 20130627
  Serious: Yes (Other)
  Sender: FDA-Public Use
  Company Number: PHHY2012AT113719

PATIENT
  Sex: Male

DRUGS (2)
  1. PREDNISONE [Suspect]
     Indication: ACUTE LYMPHOCYTIC LEUKAEMIA
     Dosage: 60 mg/m2, QD
  2. ASPARAGINASE [Suspect]
     Indication: ACUTE LYMPHOCYTIC LEUKAEMIA
     Dosage: 5000 IE/m^2 /day

REACTIONS (4)
  - Hypertriglyceridaemia [Recovered/Resolved]
  - Angina pectoris [Unknown]
  - Abdominal pain [Unknown]
  - Pancreatic enzymes increased [Unknown]
